FAERS Safety Report 19185661 (Version 1)
Quarter: 2021Q2

REPORT INFORMATION
  Report Type: Spontaneous
  Country: US (occurrence: US)
  Receive Date: 20210427
  Receipt Date: 20210427
  Transmission Date: 20210717
  Serious: No
  Sender: FDA-Public Use
  Company Number: US-BRACCO-2021US00560

PATIENT
  Sex: Female

DRUGS (6)
  1. READI?CAT [Suspect]
     Active Substance: BARIUM SULFATE
     Indication: DIAGNOSTIC PROCEDURE
     Dosage: UNK UNK, SINGLE
     Dates: start: 20210209, end: 20210209
  2. FAMOTIDINE. [Concomitant]
     Active Substance: FAMOTIDINE
  3. PHENTERMINE. [Concomitant]
     Active Substance: PHENTERMINE
  4. NAPROXEN. [Concomitant]
     Active Substance: NAPROXEN
  5. PROGESTERONE. [Concomitant]
     Active Substance: PROGESTERONE
  6. THYROXINE [Concomitant]
     Active Substance: LEVOTHYROXINE

REACTIONS (1)
  - Abdominal distension [Recovered/Resolved]

NARRATIVE: CASE EVENT DATE: 20210209
